FAERS Safety Report 8335029-4 (Version None)
Quarter: 2012Q2

REPORT INFORMATION
  Report Type: 
  Country: None (occurrence: None)
  Receive Date: 20120503
  Receipt Date: 20120424
  Transmission Date: 20120825
  Serious: Yes (Other)
  Sender: FDA-Public Use
  Company Number: US-ASTRAZENECA-2012SE26531

PATIENT
  Age: 74 Year
  Sex: Male
  Weight: 62.1 kg

DRUGS (8)
  1. PULMICORT FLEXHALER [Suspect]
     Indication: EMPHYSEMA
     Dosage: 180MCG 1 PUFF TWICE DAILY
     Route: 055
     Dates: start: 20120423, end: 20120424
  2. LISINOPRIL [Suspect]
     Indication: BLOOD PRESSURE ABNORMAL
     Route: 048
  3. ALBUTEROL [Concomitant]
  4. DILTIAZEM [Concomitant]
     Indication: BLOOD PRESSURE ABNORMAL
  5. THYROID MEDICINES [Concomitant]
  6. ISOSORBIDE DINITRATE [Concomitant]
     Indication: BLOOD PRESSURE ABNORMAL
  7. PULMICORT FLEXHALER [Suspect]
     Indication: CHRONIC OBSTRUCTIVE PULMONARY DISEASE
     Dosage: 180MCG 1 PUFF TWICE DAILY
     Route: 055
     Dates: start: 20120423, end: 20120424
  8. NEXIUM [Suspect]
     Route: 048

REACTIONS (7)
  - COLON CANCER [None]
  - DIZZINESS [None]
  - EYE IRRITATION [None]
  - BLADDER DILATATION [None]
  - DYSGEUSIA [None]
  - DIVERTICULITIS [None]
  - OFF LABEL USE [None]
